FAERS Safety Report 13060780 (Version 1)
Quarter: 2016Q4

REPORT INFORMATION
  Report Type: Spontaneous
  Country: US (occurrence: US)
  Receive Date: 20161225
  Receipt Date: 20161225
  Transmission Date: 20170207
  Serious: No
  Sender: FDA-Public Use
  Company Number: US-TAIHO ONCOLOGY INC-EU-2016-03212

PATIENT
  Sex: Male

DRUGS (12)
  1. KIONEX [Concomitant]
     Active Substance: SODIUM POLYSTYRENE SULFONATE
     Dosage: NI
  2. ONDANSETRON [Concomitant]
     Active Substance: ONDANSETRON
  3. VENLAFAXINE [Concomitant]
     Active Substance: VENLAFAXINE HYDROCHLORIDE
  4. HYDROCHLOROTHIAZIDE. [Concomitant]
     Active Substance: HYDROCHLOROTHIAZIDE
  5. LONSURF [Suspect]
     Active Substance: TIPIRACIL HYDROCHLORIDE\TRIFLURIDINE
     Indication: APPENDIX CANCER
     Dosage: DOSAGE AND FREQUENCY UNKNOWN
     Route: 048
  6. METOCLOPRAMIDE HYDROCHLORIDE. [Concomitant]
     Active Substance: METOCLOPRAMIDE HYDROCHLORIDE
  7. LONSURF [Suspect]
     Active Substance: TIPIRACIL HYDROCHLORIDE\TRIFLURIDINE
     Indication: CARCINOID TUMOUR
  8. OMEPRAZOLE. [Concomitant]
     Active Substance: OMEPRAZOLE
  9. TAMSULOSIN [Concomitant]
     Active Substance: TAMSULOSIN
  10. LANTUS [Concomitant]
     Active Substance: INSULIN GLARGINE
  11. HUMALOG [Concomitant]
     Active Substance: INSULIN LISPRO
  12. LISINOPRIL. [Concomitant]
     Active Substance: LISINOPRIL

REACTIONS (1)
  - Drug ineffective [Unknown]

NARRATIVE: CASE EVENT DATE: 2016
